FAERS Safety Report 6123521-2 (Version None)
Quarter: 2009Q1

REPORT INFORMATION
  Report Type: 
  Country: None (occurrence: None)
  Receive Date: 20090318
  Receipt Date: 20090309
  Transmission Date: 20090719
  Serious: Yes (Other)
  Sender: FDA-Public Use
  Company Number: CO-ALLERGAN-0903516US

PATIENT
  Sex: Male

DRUGS (1)
  1. BOTOX [Suspect]
     Indication: DYSTONIA
     Dosage: 400 UNITS, UNK
     Dates: start: 20090217, end: 20090217

REACTIONS (3)
  - ASTHENIA [None]
  - DYSPHAGIA [None]
  - DYSPNOEA [None]
